FAERS Safety Report 7144018-7 (Version None)
Quarter: 2010Q4

REPORT INFORMATION
  Report Type: 
  Country: None (occurrence: None)
  Receive Date: 20101208
  Receipt Date: 20101130
  Transmission Date: 20110411
  Serious: Yes (Hospitalization)
  Sender: FDA-Public Use
  Company Number: DE-BIOGENIDEC-2010BI041789

PATIENT
  Age: 59 Year
  Sex: Female
  Weight: 48 kg

DRUGS (4)
  1. AVONEX [Suspect]
     Indication: RELAPSING-REMITTING MULTIPLE SCLEROSIS
     Dates: start: 20020101, end: 20100801
  2. AVONEX [Suspect]
     Dates: start: 20101001
  3. ALENDRON BETA [Concomitant]
     Indication: PRODUCT USED FOR UNKNOWN INDICATION
  4. METODOC 50 MG [Concomitant]
     Indication: PRODUCT USED FOR UNKNOWN INDICATION

REACTIONS (3)
  - GASTRIC CANCER [None]
  - IMPAIRED HEALING [None]
  - WOUND SECRETION [None]
